FAERS Safety Report 4278579-2 (Version None)
Quarter: 2004Q1

REPORT INFORMATION
  Report Type: 
  Country: None (occurrence: None)
  Receive Date: 20040122
  Receipt Date: 20031009
  Transmission Date: 20041129
  Serious: Yes (Other)
  Sender: FDA-Public Use
  Company Number: US012622

PATIENT

DRUGS (2)
  1. PROVIGIL [Suspect]
  2. WELLBUTRIN [Suspect]

REACTIONS (1)
  - CONVULSION [None]
